FAERS Safety Report 5493340-9 (Version None)
Quarter: 2007Q4

REPORT INFORMATION
  Report Type: 
  Country: None (occurrence: None)
  Receive Date: 20071023
  Receipt Date: 20071015
  Transmission Date: 20080405
  Serious: Yes (Other)
  Sender: FDA-Public Use
  Company Number: US-ROCHE-451700

PATIENT
  Age: 16 Year
  Sex: Male
  Weight: 77.1 kg

DRUGS (2)
  1. ACCUTANE [Suspect]
     Route: 048
     Dates: start: 19961021, end: 19970501
  2. TYLENOL (CAPLET) [Concomitant]

REACTIONS (16)
  - ACNE [None]
  - ARTHRITIS [None]
  - COLITIS ULCERATIVE [None]
  - CROHN'S DISEASE [None]
  - FATIGUE [None]
  - GASTROINTESTINAL INJURY [None]
  - HEADACHE [None]
  - HEPATIC ENZYME INCREASED [None]
  - INFLAMMATORY BOWEL DISEASE [None]
  - INTESTINAL HAEMORRHAGE [None]
  - LIP DRY [None]
  - LIP PAIN [None]
  - MYALGIA [None]
  - NASAL DRYNESS [None]
  - PROCTITIS ULCERATIVE [None]
  - PROCTOCOLITIS [None]
